FAERS Safety Report 6347323-7 (Version None)
Quarter: 2009Q3

REPORT INFORMATION
  Report Type: 
  Country: None (occurrence: None)
  Receive Date: 20090910
  Receipt Date: 20090902
  Transmission Date: 20100115
  Serious: Yes (Other)
  Sender: FDA-Public Use
  Company Number: PHEH2009US10262

PATIENT
  Sex: Female

DRUGS (1)
  1. EXJADE [Suspect]
     Dosage: 2000 MG/DAY
     Route: 048
     Dates: start: 20090716, end: 20090817

REACTIONS (3)
  - BLINDNESS [None]
  - DEAFNESS [None]
  - PRURITUS [None]
